FAERS Safety Report 8247199-7 (Version None)
Quarter: 2012Q1

REPORT INFORMATION
  Report Type: 
  Country: None (occurrence: None)
  Receive Date: 20120330
  Receipt Date: 20120323
  Transmission Date: 20120608
  Serious: Yes (Hospitalization)
  Sender: FDA-Public Use
  Company Number: US-BAYER-2012-028959

PATIENT
  Age: 39 Year
  Sex: Female
  Weight: 92.517 kg

DRUGS (9)
  1. ZOFRAN [Concomitant]
     Indication: NAUSEA
     Dosage: 8 MG, PRN
     Route: 048
     Dates: start: 20100518
  2. IBUPROFEN (ADVIL) [Concomitant]
     Dosage: EVERY 6 HOURS, AS NEEDED
     Route: 048
     Dates: start: 20100609
  3. METHOCARBAMOL [Concomitant]
     Dosage: 750 MG, UNK
     Dates: start: 20100525
  4. YAZ [Suspect]
     Indication: ENDOMETRIOSIS
  5. METROGEL-VAGINAL [METRONIDAZOLE] [Concomitant]
     Indication: VAGINAL INFLAMMATION
     Dosage: UNK
     Route: 067
     Dates: start: 20100202, end: 20100319
  6. SOMA [Concomitant]
     Indication: MUSCLE RELAXANT THERAPY
     Dosage: UNK UNK, QD
     Route: 048
     Dates: start: 20100609
  7. VICODIN [Concomitant]
     Indication: PAIN
     Dosage: 5/500 PRN
     Route: 048
     Dates: start: 20100518
  8. ULTRACET [Concomitant]
     Indication: PAIN
     Dosage: UNK UNK, PRN
     Route: 048
     Dates: start: 20100601
  9. TRAMADOL HCL [Concomitant]
     Indication: PAIN
     Dosage: 50 MG, EVERY 6 HOURS, AS NEEDED
     Route: 048
     Dates: start: 20100609

REACTIONS (1)
  - DEEP VEIN THROMBOSIS [None]
